FAERS Safety Report 13653491 (Version 1)
Quarter: 2017Q2

REPORT INFORMATION
  Report Type: Spontaneous
  Country: US (occurrence: US)
  Receive Date: 20170614
  Receipt Date: 20170614
  Transmission Date: 20170830
  Serious: No
  Sender: FDA-Public Use
  Company Number: US-CARDINAL HEALTH 414, LLC-2022022

PATIENT
  Age: 57 Year
  Sex: Female
  Weight: 85.91 kg

DRUGS (1)
  1. TECHNETIUM TC-99M SESTAMIBI KIT [Suspect]
     Active Substance: TECHNETIUM TC-99M SESTAMIBI
     Indication: SCAN MYOCARDIAL PERFUSION
     Route: 042
     Dates: start: 20160808, end: 20160810

REACTIONS (4)
  - Nausea [Recovered/Resolved]
  - Fatigue [Recovered/Resolved]
  - Headache [Recovered/Resolved]
  - Pain [Recovered/Resolved]

NARRATIVE: CASE EVENT DATE: 20160808
